FAERS Safety Report 5419182-8 (Version None)
Quarter: 2007Q3

REPORT INFORMATION
  Report Type: 
  Country: None (occurrence: None)
  Receive Date: 20070817
  Receipt Date: 20070817
  Transmission Date: 20080115
  Serious: No
  Sender: FDA-Public Use
  Company Number: None

PATIENT
  Age: 34 Year
  Sex: Female
  Weight: 58.514 kg

DRUGS (2)
  1. YAZ [Suspect]
     Indication: CONTRACEPTION
     Dates: start: 20070610, end: 20070810
  2. YAZ [Suspect]
     Indication: POLYCYSTIC OVARIES
     Dates: start: 20070610, end: 20070810

REACTIONS (4)
  - HEADACHE [None]
  - INFLUENZA [None]
  - NAUSEA [None]
  - PAIN [None]
